FAERS Safety Report 10451345 (Version 2)
Quarter: 2014Q3

REPORT INFORMATION
  Report Type: Spontaneous
  Country: BG (occurrence: BG)
  Receive Date: 20140912
  Receipt Date: 20140919
  Transmission Date: 20150326
  Serious: Yes (Life-Threatening)
  Sender: FDA-Public Use
  Company Number: BG-B.I. PHARMACEUTICALS,INC./RIDGEFIELD-2014-BI-42851BG

PATIENT
  Sex: Female

DRUGS (2)
  1. THREE ANTIHYPERTENSIVE PRODUCTS (BRAND NAMES NOT PROVIDED) [Concomitant]
     Indication: HYPERTENSION
     Route: 065
  2. JENTADUETO [Suspect]
     Active Substance: LINAGLIPTIN\METFORMIN HYDROCHLORIDE
     Indication: TYPE 2 DIABETES MELLITUS
     Dosage: DOSE PER APPLICATION 2.5/850 MG
     Route: 048

REACTIONS (5)
  - Swollen tongue [Recovered/Resolved]
  - Dyspnoea [Recovered/Resolved]
  - Pruritus generalised [Recovered/Resolved]
  - Hypersensitivity [Recovered/Resolved]
  - Urticaria [Recovered/Resolved]
